FAERS Safety Report 11607968 (Version 1)
Quarter: 2015Q4

REPORT INFORMATION
  Report Type: Spontaneous
  Country: US (occurrence: US)
  Receive Date: 20151007
  Receipt Date: 20151007
  Transmission Date: 20160304
  Serious: No
  Sender: FDA-Public Use
  Company Number: US-ASTRAZENECA-2015SE93271

PATIENT
  Sex: Male
  Weight: 74.8 kg

DRUGS (11)
  1. VYCODIN [Concomitant]
     Indication: PAIN
  2. ROBAXEN [Concomitant]
     Indication: HYPOTONIA
  3. NISOLDIPINE. [Concomitant]
     Active Substance: NISOLDIPINE
     Indication: BLOOD PRESSURE ABNORMAL
  4. SUCRALFATE. [Concomitant]
     Active Substance: SUCRALFATE
     Indication: PEPTIC ULCER
  5. MOVANTIK [Suspect]
     Active Substance: NALOXEGOL OXALATE
     Indication: CONSTIPATION
     Route: 048
     Dates: start: 20150918
  6. PANTOPRAZOLE [Concomitant]
     Active Substance: PANTOPRAZOLE SODIUM
     Indication: PEPTIC ULCER
  7. ZIAC 5/6.25 [Concomitant]
     Indication: BLOOD PRESSURE ABNORMAL
  8. MORPHINE [Concomitant]
     Active Substance: MORPHINE
     Indication: BACK PAIN
     Dates: start: 1991
  9. CATAPRES [Concomitant]
     Active Substance: CLONIDINE HYDROCHLORIDE
     Indication: BLOOD PRESSURE ABNORMAL
  10. ZIAC 10/6.25 [Concomitant]
     Indication: BLOOD PRESSURE ABNORMAL
  11. FINASTERIDE. [Concomitant]
     Active Substance: FINASTERIDE
     Indication: PROSTATE CANCER

REACTIONS (6)
  - Bowel movement irregularity [Unknown]
  - Decreased appetite [Unknown]
  - Weight decreased [Unknown]
  - Peripheral swelling [Unknown]
  - Diarrhoea [Unknown]
  - Drug effect delayed [Unknown]
